FAERS Safety Report 14934940 (Version 1)
Quarter: 2018Q2

REPORT INFORMATION
  Report Type: Spontaneous
  Country: US (occurrence: US)
  Receive Date: 20180506
  Receipt Date: 20180506
  Transmission Date: 20180711
  Serious: No
  Sender: FDA-Public Use
  Company Number: None

PATIENT
  Age: 5 Year
  Sex: Male
  Weight: 18 kg

DRUGS (1)
  1. SINGULAIR [Suspect]
     Active Substance: MONTELUKAST SODIUM
     Indication: COUGH
     Dosage: ?          QUANTITY:1 DF DOSAGE FORM;?
     Route: 048
     Dates: start: 20180113, end: 20180211

REACTIONS (8)
  - Depression [None]
  - Psychiatric symptom [None]
  - Somnambulism [None]
  - Sensory overload [None]
  - Crying [None]
  - Sleep terror [None]
  - Anger [None]
  - Urinary incontinence [None]

NARRATIVE: CASE EVENT DATE: 20180215
